FAERS Safety Report 17371114 (Version 1)
Quarter: 2020Q1

REPORT INFORMATION
  Report Type: Spontaneous
  Country: US (occurrence: US)
  Receive Date: 20200121
  Receipt Date: 20200121
  Transmission Date: 20200409
  Serious: No
  Sender: FDA-Public Use
  Company Number: None

PATIENT
  Sex: Female

DRUGS (3)
  1. CAPECITABINE 150M,G [Suspect]
     Active Substance: CAPECITABINE
     Indication: BREAST CANCER
     Route: 048
  2. CAPECITABINE 150M,G [Suspect]
     Active Substance: CAPECITABINE
     Route: 048
  3. CAPECITABINE 500MG [Suspect]
     Active Substance: CAPECITABINE

REACTIONS (2)
  - Chest pain [None]
  - Dyspnoea [None]
